FAERS Safety Report 11410044 (Version 1)
Quarter: 2015Q3

REPORT INFORMATION
  Report Type: Spontaneous
  Country: US (occurrence: None)
  Receive Date: 20150813
  Receipt Date: 20150813
  Transmission Date: 20151125
  Serious: Yes (Other)
  Sender: FDA-Public Use
  Company Number: M2014-012H

PATIENT
  Age: 39 Year
  Sex: Male
  Weight: 114.76 kg

DRUGS (6)
  1. VARIOUS, GREER LABS [Suspect]
     Active Substance: UNSPECIFIED INGREDIENT
     Indication: HYPERSENSITIVITY
     Dosage: UNKNOWN, ONCE, SCRATCH
     Dates: start: 20140807
  2. POSITIVE SKIN TEST CONTROL - HISTAMINE [Suspect]
     Active Substance: HISTAMINE
     Indication: HYPERSENSITIVITY
     Dosage: SCRATCH; DROP
     Dates: start: 20140807
  3. NASONEX [Concomitant]
     Active Substance: MOMETASONE FUROATE
  4. SINGULAIR [Concomitant]
     Active Substance: MONTELUKAST SODIUM
  5. PROVENTIL [Concomitant]
     Active Substance: ALBUTEROL
  6. ZANTAC [Concomitant]
     Active Substance: RANITIDINE HYDROCHLORIDE

REACTIONS (3)
  - Cough [None]
  - Enlarged uvula [None]
  - Pruritus [None]

NARRATIVE: CASE EVENT DATE: 20140807
